FAERS Safety Report 20712803 (Version 1)
Quarter: 2022Q2

REPORT INFORMATION
  Report Type: Spontaneous
  Country: CA (occurrence: CA)
  Receive Date: 20220415
  Receipt Date: 20220415
  Transmission Date: 20220721
  Serious: Yes (Hospitalization)
  Sender: FDA-Public Use
  Company Number: CA-BAXTER-2022BAX007935

PATIENT
  Age: 63 Year
  Sex: Female

DRUGS (13)
  1. CYCLOPHOSPHAMIDE [Suspect]
     Active Substance: CYCLOPHOSPHAMIDE
     Indication: Plasma cell myeloma
     Dosage: DOSAGE FORM: NOT SPECIFIED
     Route: 065
  2. CYCLOPHOSPHAMIDE [Suspect]
     Active Substance: CYCLOPHOSPHAMIDE
     Route: 065
  3. CYCLOPHOSPHAMIDE [Suspect]
     Active Substance: CYCLOPHOSPHAMIDE
     Indication: Plasma cell myeloma
     Dosage: 21 EVERY 28 DAYS
     Route: 048
  4. DEXAMETHASONE [Suspect]
     Active Substance: DEXAMETHASONE
     Indication: Plasma cell myeloma
     Route: 065
  5. DEXAMETHASONE [Suspect]
     Active Substance: DEXAMETHASONE
     Route: 048
  6. DEXAMETHASONE [Suspect]
     Active Substance: DEXAMETHASONE
     Dosage: DOSAGE FORM: NOT SPECIFIED
     Route: 065
  7. DEXAMETHASONE [Suspect]
     Active Substance: DEXAMETHASONE
     Route: 048
  8. LENALIDOMIDE [Suspect]
     Active Substance: LENALIDOMIDE
     Indication: Plasma cell myeloma
     Route: 048
  9. LENALIDOMIDE [Suspect]
     Active Substance: LENALIDOMIDE
     Dosage: 21 EVERY 28 DAYS
     Route: 048
  10. BORTEZOMIB [Concomitant]
     Active Substance: BORTEZOMIB
     Indication: Plasma cell myeloma
     Route: 065
  11. DOXYCYCLINE [Concomitant]
     Active Substance: DOXYCYCLINE
     Indication: Productive cough
     Dosage: DOSAGE FORM: NOT SPECIFIED
     Route: 065
  12. LOSARTAN [Concomitant]
     Active Substance: LOSARTAN
     Indication: Plasma cell myeloma
     Route: 048
  13. MELPHALAN [Concomitant]
     Active Substance: MELPHALAN
     Indication: Plasma cell myeloma
     Dosage: DOSAGE FORM: NOT SPECIFIED
     Route: 065

REACTIONS (8)
  - Plasma cell myeloma [Recovered/Resolved]
  - Atrial fibrillation [Recovered/Resolved]
  - Diarrhoea [Recovered/Resolved]
  - Escherichia bacteraemia [Recovered/Resolved]
  - Hypotension [Recovered/Resolved]
  - Nausea [Recovered/Resolved]
  - Septic shock [Recovered/Resolved]
  - Urinary tract infection [Recovered/Resolved]
